FAERS Safety Report 11665301 (Version 1)
Quarter: 2015Q4

REPORT INFORMATION
  Report Type: Report from Study
  Country: US (occurrence: US)
  Receive Date: 20151027
  Receipt Date: 20151027
  Transmission Date: 20160304
  Serious: Yes (Hospitalization)
  Sender: FDA-Public Use
  Company Number: US-GILEAD-2015-0178450

PATIENT
  Age: 42 Year
  Sex: Female

DRUGS (21)
  1. COUMADIN [Concomitant]
     Active Substance: WARFARIN SODIUM
  2. AMBRISENTAN [Suspect]
     Active Substance: AMBRISENTAN
     Indication: COR PULMONALE CHRONIC
     Dosage: 5 MG, QD
     Route: 065
     Dates: start: 20090402
  3. VELETRI [Concomitant]
     Active Substance: EPOPROSTENOL
  4. MIRALAX [Concomitant]
     Active Substance: POLYETHYLENE GLYCOL 3350
  5. SPIRONOLACTONE. [Concomitant]
     Active Substance: SPIRONOLACTONE
  6. CYCLOBENZAPRINE [Concomitant]
     Active Substance: CYCLOBENZAPRINE
  7. FAMOTIDINE. [Concomitant]
     Active Substance: FAMOTIDINE
  8. FERROUS SULFATE [Concomitant]
     Active Substance: FERROUS SULFATE\FERROUS SULFATE, DRIED
  9. TORSEMIDE. [Concomitant]
     Active Substance: TORSEMIDE
  10. METHADONE [Concomitant]
     Active Substance: METHADONE HYDROCHLORIDE
  11. METOPROLOL SUCCINATE. [Concomitant]
     Active Substance: METOPROLOL SUCCINATE
  12. VENTAVIS [Concomitant]
     Active Substance: ILOPROST
  13. HYDROMORPHONE [Concomitant]
     Active Substance: HYDROMORPHONE
  14. DOBUTAMINE [Concomitant]
     Active Substance: DOBUTAMINE\DOBUTAMINE HYDROCHLORIDE
  15. POTASSIUM [Concomitant]
     Active Substance: POTASSIUM
  16. LORATADINE. [Concomitant]
     Active Substance: LORATADINE
  17. METOLAZONE. [Concomitant]
     Active Substance: METOLAZONE
  18. SENNA                              /00142201/ [Concomitant]
     Active Substance: SENNA LEAF
  19. ZOFRAN [Concomitant]
     Active Substance: ONDANSETRON HYDROCHLORIDE
  20. LORAZEPAM. [Concomitant]
     Active Substance: LORAZEPAM
  21. DIGOXIN. [Concomitant]
     Active Substance: DIGOXIN

REACTIONS (2)
  - Device malfunction [Unknown]
  - Dyspnoea [Unknown]
